FAERS Safety Report 9922323 (Version 1)
Quarter: 2014Q1

REPORT INFORMATION
  Report Type: Spontaneous
  Country: US (occurrence: None)
  Receive Date: 20140224
  Receipt Date: 20140224
  Transmission Date: 20141002
  Serious: Yes (Life-Threatening, Hospitalization, Other)
  Sender: FDA-Public Use
  Company Number: None

PATIENT
  Age: 26 Year
  Sex: Female
  Weight: 58.97 kg

DRUGS (3)
  1. ISONIAZID [Suspect]
     Indication: TUBERCULOSIS
     Dosage: 1 PILL ONCE/DAY MOUT
     Route: 048
     Dates: start: 20130815, end: 20130924
  2. PROPANOLOL [Concomitant]
  3. CONCERTA [Concomitant]

REACTIONS (11)
  - Dyspepsia [None]
  - Pruritus [None]
  - Weight decreased [None]
  - Faeces pale [None]
  - Urine output decreased [None]
  - Fatigue [None]
  - Nausea [None]
  - Vomiting [None]
  - Hepatotoxicity [None]
  - International normalised ratio increased [None]
  - Hepatic failure [None]
